FAERS Safety Report 16111105 (Version 1)
Quarter: 2019Q1

REPORT INFORMATION
  Report Type: Spontaneous
  Country: US (occurrence: US)
  Receive Date: 20190220
  Receipt Date: 20190220
  Transmission Date: 20190418
  Serious: Yes (Other)
  Sender: FDA-Public Use
  Company Number: None

PATIENT
  Age: 55 Year
  Sex: Female
  Weight: 94.08 kg

DRUGS (1)
  1. BOTULINUM TOXIN TYPE A [Suspect]
     Active Substance: BOTULINUM TOXIN TYPE A
     Indication: MIGRAINE
     Route: 041
     Dates: start: 20181030, end: 20181030

REACTIONS (5)
  - Muscular weakness [None]
  - Headache [None]
  - Dysphonia [None]
  - Dysphagia [None]
  - Muscle spasms [None]

NARRATIVE: CASE EVENT DATE: 20181119
